FAERS Safety Report 17604738 (Version 1)
Quarter: 2020Q1

REPORT INFORMATION
  Report Type: Spontaneous
  Country: ES (occurrence: ES)
  Receive Date: 20200331
  Receipt Date: 20200331
  Transmission Date: 20200409
  Serious: Yes (Hospitalization, Other)
  Sender: FDA-Public Use
  Company Number: ES-ACCORD-177877

PATIENT
  Age: 64 Year
  Sex: Female

DRUGS (3)
  1. PREDNISOLONE. [Concomitant]
     Active Substance: PREDNISOLONE
     Dosage: THRICE DAILY
     Dates: start: 2019
  2. VIGAMOX [Suspect]
     Active Substance: MOXIFLOXACIN HYDROCHLORIDE
     Indication: PROPHYLAXIS
     Dosage: INTRACAMERAL MOXIFLOXACIN; 0.1 ML OF 5MG/ML MOXIFLOXACIN
     Route: 031
     Dates: start: 20190402, end: 20190408
  3. MITOMYCIN. [Suspect]
     Active Substance: MITOMYCIN
     Indication: SCAR
     Dosage: MITOMYCIN C WAS APPLIED UNDER THE CONJUNCTIVA FOR 40 S
     Route: 047
     Dates: start: 20190401, end: 20190401

REACTIONS (6)
  - Iris disorder [Recovered/Resolved]
  - Pupils unequal [Recovered/Resolved]
  - Iris transillumination defect [Recovered/Resolved]
  - Anterior chamber pigmentation [Recovered/Resolved]
  - Pupillary disorder [Recovered/Resolved]
  - Corectopia [Not Recovered/Not Resolved]

NARRATIVE: CASE EVENT DATE: 2019
